FAERS Safety Report 6414552-3 (Version None)
Quarter: 2009Q4

REPORT INFORMATION
  Report Type: 
  Country: None (occurrence: None)
  Receive Date: 20091026
  Receipt Date: 20091013
  Transmission Date: 20100525
  Serious: Yes (Other)
  Sender: FDA-Public Use
  Company Number: GB-ELI_LILLY_AND_COMPANY-GB200910003068

PATIENT
  Sex: Male

DRUGS (4)
  1. FLUOXETINE [Suspect]
     Indication: ANXIETY
     Dosage: UNK, UNKNOWN
     Route: 048
     Dates: start: 20081027
  2. CLOZARIL [Concomitant]
     Indication: SCHIZOPHRENIA
     Dosage: 400 MG, DAILY (1/D)
     Route: 048
     Dates: end: 20080914
  3. CLOZARIL [Concomitant]
     Dosage: 300 MG, DAILY (1/D)
     Route: 048
     Dates: start: 20080914
  4. CLOZARIL [Concomitant]
     Dosage: 300 MG, UNKNOWN
     Route: 065

REACTIONS (2)
  - ANTIPSYCHOTIC DRUG LEVEL INCREASED [None]
  - HYPERCHOLESTEROLAEMIA [None]
